FAERS Safety Report 19286326 (Version 1)
Quarter: 2021Q2

REPORT INFORMATION
  Report Type: Spontaneous
  Country: US (occurrence: US)
  Receive Date: 20210521
  Receipt Date: 20210521
  Transmission Date: 20210717
  Serious: No
  Sender: FDA-Public Use
  Company Number: US-RADIUS HEALTH INC.-2020US002779

PATIENT
  Sex: Female

DRUGS (10)
  1. HYDROCHLOROTHIAZIDE. [Concomitant]
     Active Substance: HYDROCHLOROTHIAZIDE
     Indication: HYPERTENSION
     Dosage: 0.5 MG, 1 X DAILY
  2. LIPITOR [Concomitant]
     Active Substance: ATORVASTATIN CALCIUM
     Indication: BLOOD CHOLESTEROL INCREASED
     Dosage: 40 MG, QD
  3. TRAMADOL. [Concomitant]
     Active Substance: TRAMADOL
     Indication: PAIN
     Dosage: 100 MG, BID
  4. VITAMIN D                          /00107901/ [Concomitant]
     Active Substance: ERGOCALCIFEROL
     Indication: OSTEOPOROSIS
  5. TYMLOS [Suspect]
     Active Substance: ABALOPARATIDE
     Indication: OSTEOPOROSIS
     Dosage: 80 MCG, DAILY
     Route: 058
     Dates: start: 20200801
  6. METOPROLOL. [Concomitant]
     Active Substance: METOPROLOL
     Indication: HYPERTENSION
     Dosage: 50 MG, 1 X DAILY
  7. PRILOSEC [Concomitant]
     Active Substance: OMEPRAZOLE MAGNESIUM
     Indication: GASTROOESOPHAGEAL REFLUX DISEASE
     Dosage: 10 MG, QD
  8. DUREZOL [Concomitant]
     Active Substance: DIFLUPREDNATE
     Indication: BLINDNESS
     Dosage: 4?6 DROPS TO LEFT EYE
  9. MECLIZINE [Concomitant]
     Active Substance: MECLIZINE HYDROCHLORIDE
     Indication: DIZZINESS
  10. VICODIN [Concomitant]
     Active Substance: ACETAMINOPHEN\HYDROCODONE BITARTRATE
     Indication: PAIN
     Dosage: PRN

REACTIONS (10)
  - Emotional disorder [Not Recovered/Not Resolved]
  - Fatigue [Unknown]
  - Thirst [Unknown]
  - Muscular weakness [Not Recovered/Not Resolved]
  - Limb discomfort [Not Recovered/Not Resolved]
  - Musculoskeletal discomfort [Not Recovered/Not Resolved]
  - Nausea [Not Recovered/Not Resolved]
  - Anxiety [Not Recovered/Not Resolved]
  - Headache [Unknown]
  - Dizziness [Not Recovered/Not Resolved]
